FAERS Safety Report 12744347 (Version 1)
Quarter: 2016Q3

REPORT INFORMATION
  Report Type: Spontaneous
  Country: DE (occurrence: DE)
  Receive Date: 20160914
  Receipt Date: 20160914
  Transmission Date: 20161109
  Serious: Yes (Hospitalization)
  Sender: FDA-Public Use
  Company Number: DE-DSJP-DSE-2016-130095

PATIENT

DRUGS (1)
  1. OLMETEC 20 MG [Suspect]
     Active Substance: OLMESARTAN MEDOXOMIL
     Indication: HYPERTENSION
     Dosage: 20 MG, QD
     Route: 048
     Dates: end: 20160712

REACTIONS (3)
  - Haemoptysis [Recovered/Resolved]
  - Pulmonary haemorrhage [Recovered/Resolved]
  - Bronchoalveolar lavage [Recovered/Resolved]

NARRATIVE: CASE EVENT DATE: 20160711
